FAERS Safety Report 4497038-5 (Version None)
Quarter: 2004Q3

REPORT INFORMATION
  Report Type: 
  Country: None (occurrence: None)
  Receive Date: 20040928
  Receipt Date: 20040722
  Transmission Date: 20050211
  Serious: No
  Sender: FDA-Public Use
  Company Number: 04P-163-0267842-00

PATIENT
  Age: 44 Year
  Sex: Female
  Weight: 72.5755 kg

DRUGS (1)
  1. HUMIRA [Suspect]
     Indication: RHEUMATOID ARTHRITIS
     Dosage: 40 MG, 1 IN 2 WK, SUBCUTANEOUS
     Route: 058
     Dates: start: 20040601, end: 20040719

REACTIONS (7)
  - CHAPPED LIPS [None]
  - DRY MOUTH [None]
  - DYSPHAGIA [None]
  - EAR DISORDER [None]
  - INFLUENZA [None]
  - LOCAL SWELLING [None]
  - STOMATITIS [None]
